FAERS Safety Report 23278792 (Version 1)
Quarter: 2023Q4

REPORT INFORMATION
  Report Type: Spontaneous
  Country: CN (occurrence: CN)
  Receive Date: 20231208
  Receipt Date: 20231208
  Transmission Date: 20240110
  Serious: Yes (Other)
  Sender: FDA-Public Use
  Company Number: CN-LUNDBECK-DKLU3071124

PATIENT
  Age: 27 Year
  Sex: Female
  Weight: 45 kg

DRUGS (2)
  1. LEXAPRO [Suspect]
     Active Substance: ESCITALOPRAM OXALATE
     Indication: Depression
     Dosage: TABLETS
     Route: 048
     Dates: start: 20231119, end: 20231127
  2. OLANZAPINE [Suspect]
     Active Substance: OLANZAPINE
     Indication: Depression
     Route: 048
     Dates: start: 20231119, end: 20231127

REACTIONS (2)
  - Weight increased [Unknown]
  - Vertigo [Unknown]

NARRATIVE: CASE EVENT DATE: 20231127
